FAERS Safety Report 24289819 (Version 2)
Quarter: 2024Q3

REPORT INFORMATION
  Report Type: Report from Study
  Country: US (occurrence: US)
  Receive Date: 20240906
  Receipt Date: 20240910
  Transmission Date: 20241016
  Serious: Yes (Life-Threatening)
  Sender: UCB
  Company Number: US-UCBSA-2024040049

PATIENT
  Age: 32 Year
  Sex: Female
  Weight: 52 kg

DRUGS (4)
  1. FINTEPLA [Suspect]
     Active Substance: FENFLURAMINE
     Indication: Lennox-Gastaut syndrome
     Dosage: 5.9 MILLILITER, 2X/DAY (BID)
     Route: 048
     Dates: start: 20240203
  2. CYPRO [CYPROHEPTADINE HYDROCHLORIDE] [Concomitant]
     Indication: Weight increased
     Dosage: 4 MILLIGRAM, 3X/DAY (TID)
     Route: 048
     Dates: start: 20240623, end: 20240707
  3. CYPRO [CYPROHEPTADINE HYDROCHLORIDE] [Concomitant]
     Indication: Rash
  4. RISPERIDONE [Concomitant]
     Active Substance: RISPERIDONE
     Indication: Product used for unknown indication
     Dosage: UNK

REACTIONS (1)
  - Behaviour disorder [Recovering/Resolving]

NARRATIVE: CASE EVENT DATE: 20240610
